FAERS Safety Report 5849682-8 (Version None)
Quarter: 2008Q3

REPORT INFORMATION
  Report Type: 
  Country: None (occurrence: None)
  Receive Date: 20080818
  Receipt Date: 20080818
  Transmission Date: 20090109
  Serious: Yes (Disabling)
  Sender: FDA-Public Use
  Company Number: None

PATIENT
  Age: 54 Year
  Sex: Female
  Weight: 99.7913 kg

DRUGS (2)
  1. LEVAQUIN [Suspect]
     Indication: SINUSITIS
     Dosage: 500 QD PO
     Route: 048
  2. CIPRO [Suspect]
     Indication: DIVERTICULITIS
     Dosage: 500 QD PO
     Route: 048

REACTIONS (4)
  - ARTHROPATHY [None]
  - BURSITIS [None]
  - PAIN [None]
  - TENDONITIS [None]
